FAERS Safety Report 15543543 (Version 6)
Quarter: 2019Q2

REPORT INFORMATION
  Report Type: Spontaneous
  Country: US (occurrence: US)
  Receive Date: 20181023
  Receipt Date: 20190607
  Transmission Date: 20190711
  Serious: Yes (Other)
  Sender: FDA-Public Use
  Company Number: US-SA-2018SA292522

PATIENT
  Age: 42 Year
  Sex: Male
  Weight: 129.25 kg

DRUGS (17)
  1. FABRAZYME [Suspect]
     Active Substance: AGALSIDASE BETA
     Indication: FABRY^S DISEASE
     Dosage: 110 MG, QOW
     Route: 041
  2. NORMAL SALINE [Concomitant]
     Active Substance: SODIUM CHLORIDE
     Dosage: 0.9 %, UNK
     Route: 065
     Dates: start: 20181031
  3. STERILE WATER [Concomitant]
     Active Substance: WATER
     Dosage: 1 EACH
     Route: 042
     Dates: start: 20180523
  4. EPINEPHRINE. [Concomitant]
     Active Substance: EPINEPHRINE
     Indication: ANAPHYLACTIC REACTION
     Dosage: .3 MG
     Route: 030
     Dates: start: 20180523
  5. TEGRETOL [Concomitant]
     Active Substance: CARBAMAZEPINE
     Dosage: 1 TAB, BID
     Route: 048
     Dates: start: 20140211
  6. SODIUM CHLORIDE. [Concomitant]
     Active Substance: SODIUM CHLORIDE
     Indication: FLUSHING
     Dosage: 0.9 %
     Route: 042
     Dates: start: 20180523
  7. COUMADIN [Concomitant]
     Active Substance: WARFARIN SODIUM
     Dosage: 12.5 MG, QD
     Route: 048
     Dates: start: 20140211
  8. FABRAZYME [Suspect]
     Active Substance: AGALSIDASE BETA
     Indication: LIPIDS INCREASED
  9. DIPHENHYDRAMINE. [Concomitant]
     Active Substance: DIPHENHYDRAMINE
     Dosage: 25 MG, PRN
     Route: 065
     Dates: start: 20181031
  10. NORMAL SALINE [Concomitant]
     Active Substance: SODIUM CHLORIDE
     Dosage: 0.9 %
     Route: 042
     Dates: start: 20180523
  11. SODIUM CHLORIDE. [Concomitant]
     Active Substance: SODIUM CHLORIDE
     Dosage: 0.9 %, UNK
     Route: 065
     Dates: start: 20181031
  12. ALBUTEROL SULFATE. [Concomitant]
     Active Substance: ALBUTEROL SULFATE
     Dosage: I VIAL, PRN
     Route: 065
     Dates: start: 20181030
  13. AFRIN COLD [Concomitant]
     Dosage: 1AD INAL AS NEEDED
     Dates: start: 20181017
  14. CELEXA [CELECOXIB] [Concomitant]
     Active Substance: CELECOXIB
     Dosage: 1 TAB, QD
     Route: 048
     Dates: start: 20150227
  15. DIPHENHYDRAMINE. [Concomitant]
     Active Substance: DIPHENHYDRAMINE
     Indication: ANAPHYLACTIC REACTION
     Dosage: 25 MG
     Route: 048
     Dates: start: 20180523
  16. EPINEPHRINE. [Concomitant]
     Active Substance: EPINEPHRINE
     Dosage: 0.3 MG, PRN
     Route: 065
     Dates: start: 20181031
  17. ENALAPRIL [Concomitant]
     Active Substance: ENALAPRIL
     Dosage: 1 TAB
     Route: 048
     Dates: start: 20171117

REACTIONS (6)
  - Loss of consciousness [Recovered/Resolved]
  - Sinusitis [Unknown]
  - Cough [Unknown]
  - Upper respiratory tract infection [Unknown]
  - Rhinitis [Unknown]
  - Headache [Recovered/Resolved]

NARRATIVE: CASE EVENT DATE: 201810
